FAERS Safety Report 9898979 (Version 2)
Quarter: 2014Q2

REPORT INFORMATION
  Report Type: Report from Study
  Country: US (occurrence: US)
  Receive Date: 20140214
  Receipt Date: 20140411
  Transmission Date: 20141212
  Serious: Yes (Hospitalization)
  Sender: FDA-Public Use
  Company Number: US-JNJFOC-20140206000

PATIENT
  Age: 89 Year
  Sex: Male

DRUGS (4)
  1. ZYTIGA [Suspect]
     Indication: PROSTATE CANCER
     Dosage: 4 TABLETS OF 250 MG AT ONCE
     Route: 048
     Dates: start: 20130615, end: 20140201
  2. METFORMIN [Concomitant]
     Indication: DIABETES MELLITUS
     Route: 065
     Dates: start: 2008
  3. IMDUR [Concomitant]
     Indication: CORONARY ARTERY DISEASE
     Route: 065
     Dates: start: 2004
  4. PREDNISONE [Concomitant]
     Route: 065
     Dates: start: 20130615

REACTIONS (1)
  - Cerebrovascular accident [Recovering/Resolving]
